FAERS Safety Report 8282842-8 (Version None)
Quarter: 2012Q2

REPORT INFORMATION
  Report Type: 
  Country: None (occurrence: None)
  Receive Date: 20120410
  Receipt Date: 20120326
  Transmission Date: 20120825
  Serious: Yes (Other)
  Sender: FDA-Public Use
  Company Number: A0972200A

PATIENT
  Sex: 0

DRUGS (10)
  1. MULTIVITAMIN [Suspect]
     Indication: HYPEREMESIS GRAVIDARUM
     Dosage: /FOUR TIMES PER DAY / TRANSP
     Route: 064
  2. ACETAMINOPHEN [Suspect]
     Indication: PRODUCT USED FOR UNKNOWN INDICATION
     Dosage: / TRANSPLACENTARY
     Route: 064
  3. HYDROXYZINE [Suspect]
     Indication: HYPEREMESIS GRAVIDARUM
     Dosage: 25 MG/FOUR TIMES PER DAY / TRANSPLACENTARY
     Route: 064
  4. OMEPRAZOLE [Suspect]
     Indication: PRODUCT USED FOR UNKNOWN INDICATION
     Dosage: / TRANSPLACENTARY
     Route: 064
  5. THIAMINE HCL [Suspect]
     Indication: HYPEREMESIS GRAVIDARUM
     Dosage: 100 MG/ TRANSPLACENTARY
     Route: 064
  6. METOCLOPRAMIDE HYDROCHLORIDE [Suspect]
     Indication: HYPEREMESIS GRAVIDARUM
     Dosage: / TRANSPLACENTARY
     Route: 064
  7. DIPHENHYDRAMINE HCL [Suspect]
     Indication: HYPEREMESIS GRAVIDARUM
     Dosage: 50 MG/FOUR TIMES PER DAY / TRANSP
     Route: 064
  8. PANTOPRAZOLE [Suspect]
     Indication: PRODUCT USED FOR UNKNOWN INDICATION
     Dosage: / TRANSPLACENTARY
     Route: 064
  9. ONDANSETRON HYDROCHLORIDE [Suspect]
     Indication: HYPEREMESIS GRAVIDARUM
     Dosage: / TRANSPLACENTARY
     Route: 064
  10. RANITIDINE HYDROCHLORIDE [Suspect]
     Indication: HYPEREMESIS GRAVIDARUM
     Dosage: /TRANSPLACENTARY
     Route: 064

REACTIONS (2)
  - MATERNAL EXPOSURE DURING DELIVERY [None]
  - PREMATURE DELIVERY [None]
